FAERS Safety Report 8621545-4 (Version None)
Quarter: 2012Q3

REPORT INFORMATION
  Report Type: 
  Country: None (occurrence: None)
  Receive Date: 20120824
  Receipt Date: 20120816
  Transmission Date: 20120928
  Serious: Yes (Other)
  Sender: FDA-Public Use
  Company Number: PHHY2012GB071735

PATIENT
  Sex: Female

DRUGS (2)
  1. ENOXAPARIN [Suspect]
     Indication: AORTIC VALVE DISEASE
  2. ACETYLSALICYLIC ACID SRT [Suspect]
     Indication: AORTIC VALVE DISEASE

REACTIONS (3)
  - MATERNAL EXPOSURE DURING PREGNANCY [None]
  - ABORTION SPONTANEOUS [None]
  - TRANSIENT ISCHAEMIC ATTACK [None]
